FAERS Safety Report 4595775-5 (Version None)
Quarter: 2005Q1

REPORT INFORMATION
  Report Type: 
  Country: None (occurrence: None)
  Receive Date: 20050224
  Receipt Date: 20050224
  Transmission Date: 20050727
  Serious: Yes (Other)
  Sender: FDA-Public Use
  Company Number: None

PATIENT
  Age: 9 Year
  Sex: Male
  Weight: 24.9478 kg

DRUGS (2)
  1. PROPOXY-N/APAP [Suspect]
     Dosage: 1-4 X DAILY
  2. CARISOPRODOL [Suspect]
     Dosage: 1-4 X DAILY

REACTIONS (1)
  - MEDICATION ERROR [None]
